FAERS Safety Report 23976633 (Version 3)
Quarter: 2024Q3

REPORT INFORMATION
  Report Type: Spontaneous
  Country: US (occurrence: None)
  Receive Date: 20240614
  Receipt Date: 20240715
  Transmission Date: 20241016
  Serious: No
  Sender: ASTRAZENECA
  Company Number: 2024A130233

PATIENT
  Sex: Female

DRUGS (2)
  1. SYMBICORT [Suspect]
     Active Substance: BUDESONIDE\FORMOTEROL FUMARATE DIHYDRATE
     Indication: Asthma
     Dosage: 160 UG, 160/4.5 MCG. TWO PUFFS TWICE EACH DAY,TWO TIMES A DAY
     Route: 055
  2. SYMBICORT [Suspect]
     Active Substance: BUDESONIDE\FORMOTEROL FUMARATE DIHYDRATE
     Indication: Asthma
     Dosage: 80 UG, 80/4.5 MCG. TWO PUFFS TWICE A DAY,TWO TIMES A DAY
     Route: 055

REACTIONS (8)
  - Sedation [Unknown]
  - Respiratory tract congestion [Unknown]
  - Nervousness [Unknown]
  - Product use issue [Unknown]
  - Drug delivery system issue [Unknown]
  - Drug ineffective [Unknown]
  - Wrong technique in device usage process [Unknown]
  - Device malfunction [Unknown]
